FAERS Safety Report 8436560-3 (Version None)
Quarter: 2012Q2

REPORT INFORMATION
  Report Type: 
  Country: None (occurrence: None)
  Receive Date: 20120614
  Receipt Date: 20120611
  Transmission Date: 20120825
  Serious: Yes (Death, Other)
  Sender: FDA-Public Use
  Company Number: CZ-AMGEN-CZESP2012036042

PATIENT
  Age: 60 Year
  Sex: Male

DRUGS (1)
  1. NEUPOGEN [Suspect]
     Indication: PERIPHERAL BLOOD STEM CELL APHERESIS
     Dosage: 10 MUG/KG, QD
     Route: 058

REACTIONS (9)
  - HAEMORRHAGE INTRACRANIAL [None]
  - PERIPHERAL T-CELL LYMPHOMA UNSPECIFIED STAGE IV [None]
  - METASTASES TO LIVER [None]
  - ASCITES [None]
  - SEPSIS [None]
  - METASTASES TO SPLEEN [None]
  - METASTASES TO BONE [None]
  - METASTASES TO LYMPH NODES [None]
  - PLEURAL EFFUSION [None]
